FAERS Safety Report 4765963-3 (Version None)
Quarter: 2005Q3

REPORT INFORMATION
  Report Type: 
  Country: None (occurrence: None)
  Receive Date: 20050912
  Receipt Date: 20050831
  Transmission Date: 20060218
  Serious: Yes (Hospitalization, Other)
  Sender: FDA-Public Use
  Company Number: PHEH2005US09779

PATIENT
  Age: 70 Year
  Sex: Female

DRUGS (2)
  1. DIOVAN [Suspect]
     Indication: HYPERTENSION
     Dosage: 160 MG, QD
     Route: 048
     Dates: start: 20030101
  2. CENTRUM [Concomitant]
     Dates: end: 20050701

REACTIONS (3)
  - HYSTERECTOMY [None]
  - NEOPLASM [None]
  - SKIN ODOUR ABNORMAL [None]
